FAERS Safety Report 8469465-2 (Version None)
Quarter: 2012Q2

REPORT INFORMATION
  Report Type: 
  Country: None (occurrence: None)
  Receive Date: 20120626
  Receipt Date: 20120613
  Transmission Date: 20120825
  Serious: Yes (Hospitalization, Other)
  Sender: FDA-Public Use
  Company Number: US-CELGENEUS-163-21880-11031773

PATIENT
  Sex: Female
  Weight: 78.088 kg

DRUGS (30)
  1. POTASSIUM CHLORIDE [Concomitant]
     Route: 065
  2. SODIUM CHLORIDE [Concomitant]
     Dosage: 2 DOSAGE FORMS
     Route: 045
  3. DOXYCYCLINE HYCLATE [Concomitant]
     Dosage: 100 MILLIGRAM
     Route: 048
  4. REVLIMID [Suspect]
     Dosage: 20 MILLIGRAM
     Route: 048
     Dates: start: 20110928, end: 20111213
  5. NEURONTIN [Concomitant]
     Dosage: 300 MILLIGRAM
     Route: 048
  6. MULTI-VITAMINS [Concomitant]
     Dosage: 1 TABLET
     Route: 048
  7. PERCOCET [Concomitant]
     Indication: PAIN
     Dosage: 325 MILLIGRAM
     Route: 048
  8. POLYETHYLENE GLYCOL [Concomitant]
     Indication: CONSTIPATION
     Dosage: 17 GRAM
     Route: 048
  9. VITAMIN D [Concomitant]
     Route: 065
  10. BUSPIRONE HCL [Concomitant]
     Dosage: 1 TABLET
     Route: 048
  11. ALBUTEROL [Concomitant]
     Indication: RESPIRATORY TRACT CONGESTION
  12. METOPROLOL TARTRATE [Concomitant]
     Indication: BLOOD PRESSURE
     Dosage: 50 MILLIGRAM
     Route: 048
  13. REVLIMID [Suspect]
     Indication: MULTIPLE MYELOMA
     Dosage: 10 MILLIGRAM
     Route: 048
     Dates: start: 20100830, end: 20110726
  14. REVLIMID [Suspect]
     Route: 048
     Dates: start: 20110726, end: 20110901
  15. ALBUTEROL [Concomitant]
     Indication: COUGH
     Dosage: 18 MICROGRAM
     Route: 055
  16. ALPRAZOLAM [Concomitant]
     Dosage: .25 MICROGRAM
     Route: 048
  17. CALCIUM/VITAMIN D3 [Concomitant]
     Dosage: 600MG/400 UNITS, 2 TABLES
     Route: 048
  18. CITALOPRAM HYDROBROMIDE [Concomitant]
     Dosage: 40 MILLIGRAM
     Route: 048
  19. FENTANYL [Concomitant]
     Indication: PAIN
     Dosage: 25 MICROGRAM
     Route: 062
  20. PSEUDO 60/TRIPROLIDINE [Concomitant]
     Dosage: 2.5 MILLIGRAM
     Route: 048
  21. MIRTAZAPINE [Concomitant]
     Indication: NERVOUSNESS
     Dosage: 15 MILLIGRAM
     Route: 048
  22. DEXAMETHASONE [Concomitant]
     Indication: INFLAMMATION
     Dosage: 40 MILLIGRAM
     Route: 048
     Dates: start: 20100901
  23. ASPIRIN [Concomitant]
     Dosage: 81 MILLIGRAM
     Route: 048
  24. DOCUSATE SODIUM [Concomitant]
     Dosage: 100 MILLIGRAM
     Route: 048
  25. OMEPRAZOLE [Concomitant]
     Dosage: 20 MILLIGRAM
     Route: 048
  26. BACITRACIN [Concomitant]
     Indication: INFECTION
     Route: 061
  27. PAMIDRONATE DISODIUM [Concomitant]
     Route: 065
  28. VALACYCLOVIR HYDROCHLORIDE [Concomitant]
     Indication: INFECTION
     Dosage: 500 MILLIGRAM
     Route: 048
  29. LORATADINE [Concomitant]
     Indication: MULTIPLE ALLERGIES
     Dosage: 10 MILLIGRAM
     Route: 048
  30. FLUCONAZOLE [Concomitant]
     Indication: FUNGAL INFECTION
     Dosage: 200MG, ONE TABLET OD FOR 1 DAY, THEN TAKE ONE-HALF ONCE DAILY AT 6AM FOR 14 DAYS
     Route: 048

REACTIONS (7)
  - MONOCLONAL IMMUNOGLOBULIN PRESENT [None]
  - MALAISE [None]
  - ORGANISING PNEUMONIA [None]
  - UPPER RESPIRATORY TRACT INFECTION [None]
  - PROTEIN URINE PRESENT [None]
  - TRANSITIONAL CELL CARCINOMA [None]
  - LIGHT CHAIN ANALYSIS INCREASED [None]
